FAERS Safety Report 26133244 (Version 1)
Quarter: 2025Q4

REPORT INFORMATION
  Report Type: Spontaneous
  Country: US (occurrence: US)
  Receive Date: 20251209
  Receipt Date: 20251209
  Transmission Date: 20260117
  Serious: Yes (Other)
  Sender: BOSTON SCIENTIFIC
  Company Number: US-BSC-2025000113

PATIENT

DRUGS (1)
  1. VARITHENA [Suspect]
     Active Substance: POLIDOCANOL
     Indication: Varicose vein
     Dates: start: 20251120

REACTIONS (2)
  - Wound necrosis [Unknown]
  - Extravasation [Unknown]

NARRATIVE: CASE EVENT DATE: 20251122
